FAERS Safety Report 23893960 (Version 1)
Quarter: 2024Q2

REPORT INFORMATION
  Report Type: Spontaneous
  Country: TR (occurrence: TR)
  Receive Date: 20240524
  Receipt Date: 20240524
  Transmission Date: 20240716
  Serious: Yes (Death, Other)
  Sender: FDA-Public Use
  Company Number: TR-AMGEN-TURSP2024098379

PATIENT
  Age: 53 Year
  Sex: Female

DRUGS (2)
  1. LUMAKRAS [Suspect]
     Active Substance: SOTORASIB
     Indication: Non-small cell lung cancer metastatic
     Dosage: 960 MILLIGRAM (8X120 MG)
     Route: 065
     Dates: start: 20230328, end: 202306
  2. LUMAKRAS [Suspect]
     Active Substance: SOTORASIB
     Indication: K-ras gene mutation

REACTIONS (2)
  - Death [Fatal]
  - Non-small cell lung cancer metastatic [Unknown]

NARRATIVE: CASE EVENT DATE: 20230601
